FAERS Safety Report 24562632 (Version 2)
Quarter: 2024Q4

REPORT INFORMATION
  Report Type: Spontaneous
  Country: US (occurrence: US)
  Receive Date: 20241029
  Receipt Date: 20241030
  Transmission Date: 20250115
  Serious: No
  Sender: TEIKOKU
  Company Number: US-TPU-TPU-2024-00539

PATIENT
  Sex: Female

DRUGS (1)
  1. LIDOCAINE PATCH [Suspect]
     Active Substance: LIDOCAINE
     Indication: Back pain

REACTIONS (1)
  - Wrong technique in product usage process [Unknown]
